FAERS Safety Report 14350622 (Version 1)
Quarter: 2018Q1

REPORT INFORMATION
  Report Type: Spontaneous
  Country: US (occurrence: US)
  Receive Date: 20180104
  Receipt Date: 20180104
  Transmission Date: 20180509
  Serious: No
  Sender: FDA-Public Use
  Company Number: US-ALLERGAN-1753731US

PATIENT

DRUGS (1)
  1. VRAYLAR [Suspect]
     Active Substance: CARIPRAZINE
     Indication: PRODUCT USED FOR UNKNOWN INDICATION
     Route: 065

REACTIONS (6)
  - Vision blurred [Unknown]
  - Drug ineffective [Unknown]
  - Extrapyramidal disorder [Unknown]
  - Pain in jaw [Unknown]
  - Akathisia [Unknown]
  - Dry mouth [Unknown]
